FAERS Safety Report 17073054 (Version 1)
Quarter: 2019Q4

REPORT INFORMATION
  Report Type: Spontaneous
  Country: ES (occurrence: ES)
  Receive Date: 20191125
  Receipt Date: 20191125
  Transmission Date: 20200122
  Serious: Yes (Death, Other)
  Sender: FDA-Public Use
  Company Number: ES-SEATTLE GENETICS-2019SGN04290

PATIENT
  Age: 66 Year
  Sex: Male

DRUGS (1)
  1. ADCETRIS [Suspect]
     Active Substance: BRENTUXIMAB VEDOTIN
     Indication: LYMPHOMATOID PAPULOSIS
     Dosage: UNK
     Route: 065

REACTIONS (6)
  - Abdominal pain [Fatal]
  - Hepatic cirrhosis [Fatal]
  - Upper gastrointestinal haemorrhage [Fatal]
  - Asthenia [Fatal]
  - Death [Fatal]
  - Diarrhoea [Fatal]

NARRATIVE: CASE EVENT DATE: 20191105
